FAERS Safety Report 4978798-3 (Version None)
Quarter: 2006Q2

REPORT INFORMATION
  Report Type: 
  Country: None (occurrence: None)
  Receive Date: 20060420
  Receipt Date: 20050303
  Transmission Date: 20061013
  Serious: Yes (Death, Hospitalization)
  Sender: FDA-Public Use
  Company Number: US-MERCK-0503USA00483

PATIENT
  Age: 80 Year
  Sex: Female
  Weight: 68 kg

DRUGS (17)
  1. VIOXX [Suspect]
     Indication: ARTHRITIS
     Route: 048
     Dates: start: 19990915, end: 20020601
  2. PRILOSEC [Concomitant]
     Route: 048
  3. ISOSORBIDE MONONITRATE [Concomitant]
     Route: 065
  4. PROVERA [Concomitant]
     Route: 065
  5. POLYETHYLENE GLYCOL 3350 [Concomitant]
     Route: 065
  6. SLOW FE [Concomitant]
     Route: 065
  7. CYCLOBENZAPRINE HYDROCHLORIDE [Concomitant]
     Indication: MUSCLE RELAXANT THERAPY
     Route: 065
  8. CYCLOBENZAPRINE HYDROCHLORIDE [Concomitant]
     Indication: ANALGESIC EFFECT
     Route: 065
  9. PHENERGAN (DIBROMPROPAMIDINE ISETHIONATE (+) PROMETHAZINE) [Concomitant]
     Route: 065
  10. HYDROCHLOROTHIAZIDE [Concomitant]
     Route: 065
  11. PREMPRO [Concomitant]
     Route: 065
  12. TRIMOX [Concomitant]
     Route: 065
  13. DIOVAN [Concomitant]
     Route: 065
  14. PRINCIPEN [Concomitant]
     Route: 065
  15. METHYLPREDNISOLONE [Concomitant]
     Route: 065
  16. PROMETHAZINE HYDROCHLORIDE [Concomitant]
     Route: 065
  17. METOCLOPRAMIDE [Concomitant]
     Route: 065

REACTIONS (17)
  - ACUTE MYOCARDIAL INFARCTION [None]
  - ANOXIC ENCEPHALOPATHY [None]
  - BALANCE DISORDER [None]
  - CARDIAC ARREST [None]
  - CARDIOMEGALY [None]
  - FALL [None]
  - GAIT DISTURBANCE [None]
  - GLUCOSE TOLERANCE IMPAIRED [None]
  - HAEMATOMA [None]
  - HEAD INJURY [None]
  - HYPERTENSION [None]
  - HYPOTENSION [None]
  - IRON DEFICIENCY ANAEMIA [None]
  - LOSS OF CONSCIOUSNESS [None]
  - METABOLIC ACIDOSIS [None]
  - MUSCLE SPASMS [None]
  - PYREXIA [None]
